FAERS Safety Report 4454964-0 (Version None)
Quarter: 2004Q3

REPORT INFORMATION
  Report Type: 
  Country: None (occurrence: None)
  Receive Date: 20040824
  Receipt Date: 20040519
  Transmission Date: 20050211
  Serious: No
  Sender: FDA-Public Use
  Company Number: SU-2004-002379

PATIENT
  Age: 44 Year
  Sex: Male
  Weight: 90.7194 kg

DRUGS (5)
  1. BENICAR [Suspect]
     Indication: HYPERTENSION
     Dosage: PO
     Route: 048
  2. EFFEXOR [Concomitant]
  3. WELLBUTRIN [Concomitant]
  4. LITHIUM [Concomitant]
  5. KLONOPIN [Concomitant]

REACTIONS (1)
  - ERECTILE DYSFUNCTION [None]
